FAERS Safety Report 7825010-3 (Version None)
Quarter: 2011Q4

REPORT INFORMATION
  Report Type: 
  Country: None (occurrence: None)
  Receive Date: 20111019
  Receipt Date: 20111012
  Transmission Date: 20120403
  Serious: Yes (Hospitalization, Other)
  Sender: FDA-Public Use
  Company Number: US-MERCK-1101USA01772

PATIENT
  Age: 54 Year
  Sex: Female
  Weight: 61 kg

DRUGS (6)
  1. FOSAMAX [Suspect]
     Route: 048
     Dates: start: 20020101, end: 20080101
  2. CALCIUM CARBONATE [Concomitant]
     Route: 065
     Dates: start: 20000101
  3. VITAMIN D (UNSPECIFIED) [Concomitant]
     Route: 065
     Dates: start: 20000101
  4. PREMPRO [Concomitant]
     Route: 065
  5. MULTI-VITAMINS [Concomitant]
     Route: 065
     Dates: start: 20000101
  6. FOSAMAX [Suspect]
     Indication: OSTEOPENIA
     Route: 048
     Dates: start: 20020101, end: 20080101

REACTIONS (51)
  - ALLERGIC COUGH [None]
  - LIMB DISCOMFORT [None]
  - FOOT DEFORMITY [None]
  - INTERVERTEBRAL DISC DEGENERATION [None]
  - FEMUR FRACTURE [None]
  - BLOOD CHOLESTEROL INCREASED [None]
  - DYSPEPSIA [None]
  - GASTRITIS [None]
  - VULVOVAGINAL DRYNESS [None]
  - DRUG HYPERSENSITIVITY [None]
  - MYALGIA [None]
  - MELANOCYTIC NAEVUS [None]
  - EMPHYSEMA [None]
  - BREAST CANCER IN SITU [None]
  - EAR PAIN [None]
  - STRESS URINARY INCONTINENCE [None]
  - GAIT DISTURBANCE [None]
  - PAIN IN EXTREMITY [None]
  - OVARIAN DISORDER [None]
  - SQUAMOUS CELL CARCINOMA OF SKIN [None]
  - HYPERCHOLESTEROLAEMIA [None]
  - HAEMORRHOIDS [None]
  - PAIN IN JAW [None]
  - COUGH [None]
  - STRESS FRACTURE [None]
  - PREVENTIVE SURGERY [None]
  - URINARY TRACT INFECTION [None]
  - ASTHMA [None]
  - ARTHRALGIA [None]
  - ECHINOCOCCIASIS [None]
  - GLAUCOMA [None]
  - WEIGHT INCREASED [None]
  - VITAMIN D DEFICIENCY [None]
  - BURSITIS [None]
  - NEURODERMATITIS [None]
  - OSTEITIS DEFORMANS [None]
  - OSTEOARTHRITIS [None]
  - CHRONIC OBSTRUCTIVE PULMONARY DISEASE [None]
  - COSTOCHONDRITIS [None]
  - ENDODONTIC PROCEDURE [None]
  - MUSCULOSKELETAL STIFFNESS [None]
  - GASTROOESOPHAGEAL REFLUX DISEASE [None]
  - ALANINE AMINOTRANSFERASE INCREASED [None]
  - VIRAL INFECTION [None]
  - OTITIS EXTERNA [None]
  - OESOPHAGITIS [None]
  - EPHELIDES [None]
  - SALPINGO-OOPHORECTOMY BILATERAL [None]
  - RECTAL HAEMORRHAGE [None]
  - CHRONIC SINUSITIS [None]
  - PATHOLOGICAL FRACTURE [None]
